FAERS Safety Report 15890921 (Version 1)
Quarter: 2019Q1

REPORT INFORMATION
  Report Type: Spontaneous
  Country: US (occurrence: US)
  Receive Date: 20190130
  Receipt Date: 20190130
  Transmission Date: 20190417
  Serious: No
  Sender: FDA-Public Use
  Company Number: US-PFIZER INC-2019035816

PATIENT
  Age: 45 Year
  Sex: Male
  Weight: 71 kg

DRUGS (1)
  1. LIPITOR [Suspect]
     Active Substance: ATORVASTATIN CALCIUM
     Indication: BLOOD CHOLESTEROL INCREASED
     Dosage: 10 MG, ALTERNATE DAY (MONDAY, WEDNESDAY AND FRIDAY)
     Route: 048
     Dates: start: 201901, end: 201901

REACTIONS (2)
  - Laziness [Unknown]
  - Product use issue [Unknown]

NARRATIVE: CASE EVENT DATE: 201901
